FAERS Safety Report 17462230 (Version 1)
Quarter: 2020Q1

REPORT INFORMATION
  Report Type: Report from Study
  Country: CO (occurrence: CO)
  Receive Date: 20200226
  Receipt Date: 20200226
  Transmission Date: 20200409
  Serious: Yes (Hospitalization, Other)
  Sender: FDA-Public Use
  Company Number: CO-BRISTOL-MYERS SQUIBB COMPANY-BMS-2017-117946

PATIENT
  Age: 60 Year
  Sex: Male

DRUGS (1)
  1. ABATACEPT [Suspect]
     Active Substance: ABATACEPT
     Indication: RHEUMATOID ARTHRITIS
     Dosage: 125 MG, UNK
     Route: 058
     Dates: start: 20170808

REACTIONS (7)
  - Viral infection [Recovering/Resolving]
  - Acute myocardial infarction [Recovered/Resolved]
  - Infarction [Recovering/Resolving]
  - Abdominal pain [Recovering/Resolving]
  - Arthralgia [Unknown]
  - Dyskinesia [Recovering/Resolving]
  - Hypophagia [Unknown]

NARRATIVE: CASE EVENT DATE: 20171221
